FAERS Safety Report 5343221-6 (Version None)
Quarter: 2007Q2

REPORT INFORMATION
  Report Type: 
  Country: None (occurrence: None)
  Receive Date: 20070416
  Receipt Date: 20070205
  Transmission Date: 20071010
  Serious: No
  Sender: FDA-Public Use
  Company Number: 2007SP000395

PATIENT
  Age: 59 Year
  Sex: Female
  Weight: 58.0604 kg

DRUGS (2)
  1. LUNESTA [Suspect]
     Indication: INSOMNIA
     Dosage: 1 MG;PRN;ORAL
     Route: 048
     Dates: start: 20060801
  2. MULTIVITAMIN [Concomitant]

REACTIONS (3)
  - CHEST DISCOMFORT [None]
  - DYSGEUSIA [None]
  - PROTEIN TOTAL INCREASED [None]
